FAERS Safety Report 14360589 (Version 2)
Quarter: 2018Q1

REPORT INFORMATION
  Report Type: Spontaneous
  Country: FR (occurrence: FR)
  Receive Date: 20180106
  Receipt Date: 20180223
  Transmission Date: 20180509
  Serious: Yes (Death, Life-Threatening, Other)
  Sender: FDA-Public Use
  Company Number: FR-AUROBINDO-AUR-APL-2018-001021

PATIENT
  Age: 25 Year
  Sex: Female
  Weight: 84 kg

DRUGS (37)
  1. DOBUTAMINE [Suspect]
     Active Substance: DOBUTAMINE\DOBUTAMINE HYDROCHLORIDE
     Dosage: UP TO 1.5MG/KG ()
     Route: 065
     Dates: start: 201707, end: 201707
  2. METHYLPREDNISOLONE. [Suspect]
     Active Substance: METHYLPREDNISOLONE
     Dosage: ()
     Route: 065
  3. AMIODARONE [Suspect]
     Active Substance: AMIODARONE
     Indication: PRODUCT USED FOR UNKNOWN INDICATION
     Dosage: 600 MG, UNK
     Route: 065
     Dates: start: 20170715
  4. HEMOSOL B0 [Suspect]
     Active Substance: CALCIUM CL\DEXTROSE\LACTIC ACID\MAGNESIUM CL\POTASSIUM CL\SODIUM BICAR\SODIUM CL
     Indication: HAEMOFILTRATION
     Dosage: 3 L, 72 LITERS/DAY IN TOTAL
     Route: 042
     Dates: start: 20170715, end: 20170715
  5. NORADRENALINE                      /00127501/ [Suspect]
     Active Substance: NOREPINEPHRINE
     Indication: CARDIOVASCULAR DISORDER
     Dosage: UP TO 1.5 MG/KG ()
     Route: 065
  6. NORADRENALINE                      /00127501/ [Suspect]
     Active Substance: NOREPINEPHRINE
     Dosage: UP TO 14 MG/H ()
  7. DOBUTAMINE [Suspect]
     Active Substance: DOBUTAMINE\DOBUTAMINE HYDROCHLORIDE
     Dosage: UP TO 1.5MG/KG ()
     Route: 065
  8. ADRENALINE                         /00003901/ [Suspect]
     Active Substance: EPINEPHRINE
     Indication: PRODUCT USED FOR UNKNOWN INDICATION
     Dosage: 8 MG, UNK
     Route: 065
     Dates: start: 20170715
  9. INSULIN [Suspect]
     Active Substance: INSULIN NOS
     Indication: ADVERSE EVENT
     Dosage: 60 IU, QD
     Route: 065
     Dates: start: 20170715
  10. RASBURICASE [Suspect]
     Active Substance: RASBURICASE
     Indication: PROPHYLAXIS
     Dosage: 1 INJECTION
     Route: 065
     Dates: start: 20170708
  11. RASBURICASE [Suspect]
     Active Substance: RASBURICASE
     Dosage: 1 DF, UNK
     Route: 065
  12. PHOXILIUM [Suspect]
     Active Substance: CALCIUM CL\MAGNESIUM CL\POTASSIUM CL\SODIUM BICAR\SODIUM CL\SODIUM PHOSPHATE,DIB
     Indication: HAEMOFILTRATION
     Dosage: UNK
     Route: 010
     Dates: start: 20170715
  13. NORADRENALINE                      /00127501/ [Suspect]
     Active Substance: NOREPINEPHRINE
     Indication: CARDIOVASCULAR DISORDER
     Dosage: UP TO 1.5MG/KG ()
     Route: 065
     Dates: start: 201707, end: 201707
  14. NORADRENALINE                      /00127501/ [Suspect]
     Active Substance: NOREPINEPHRINE
     Indication: ADVERSE EVENT
     Dosage: UP TO 14MG/H ()
     Route: 065
     Dates: start: 20170715
  15. TAZOCILLINE [Concomitant]
     Active Substance: PIPERACILLIN SODIUM\TAZOBACTAM SODIUM
     Indication: PRODUCT USED FOR UNKNOWN INDICATION
     Dosage: ()
     Route: 065
  16. DOBUTAMINE [Suspect]
     Active Substance: DOBUTAMINE\DOBUTAMINE HYDROCHLORIDE
     Indication: CARDIOVASCULAR DISORDER
     Dosage: 7.5 GAMMA/KG/MIN
     Route: 065
     Dates: start: 201707
  17. DOBUTAMINE [Suspect]
     Active Substance: DOBUTAMINE\DOBUTAMINE HYDROCHLORIDE
     Dosage: 7.5 GAMMA/KG/MIN ()
     Route: 065
  18. HEPARIN [Concomitant]
     Active Substance: HEPARIN SODIUM
     Indication: PRODUCT USED FOR UNKNOWN INDICATION
     Dosage: ()
     Route: 065
  19. METHYLPREDNISOLONE. [Suspect]
     Active Substance: METHYLPREDNISOLONE
     Dosage: ()
     Route: 065
  20. NORADRENALINE                      /00127501/ [Suspect]
     Active Substance: NOREPINEPHRINE
     Dosage: UP TO 1.5 MG/KG ()
  21. SODIUM HYDROGEN CARBONATE [Suspect]
     Active Substance: SODIUM BICARBONATE
     Indication: ADVERSE EVENT
     Dosage: 8.4% MOLAR VIALS ()
     Route: 065
  22. INSULIN [Suspect]
     Active Substance: INSULIN NOS
     Dosage: 60 IU, QD
     Route: 065
     Dates: start: 20170715
  23. SODIUM BICARBONATE. [Suspect]
     Active Substance: SODIUM BICARBONATE
     Indication: ADVERSE EVENT
     Dosage: 8.4% MOLAR VIALS
     Route: 065
     Dates: start: 20170715
  24. RASBURICASE [Suspect]
     Active Substance: RASBURICASE
     Dosage: 1 DF, UNK
     Route: 065
  25. TAZOCILLINE [Concomitant]
     Active Substance: PIPERACILLIN SODIUM\TAZOBACTAM SODIUM
     Dosage: ()
     Route: 065
  26. NORADRENALINE                      /00127501/ [Suspect]
     Active Substance: NOREPINEPHRINE
     Dosage: UP TO 14 MG/H ()
     Route: 065
  27. AMIODARONE [Suspect]
     Active Substance: AMIODARONE
     Dosage: 600 MG, QD
     Route: 065
  28. AMIODARONE [Suspect]
     Active Substance: AMIODARONE
     Dosage: 600 MG, QD
     Route: 065
  29. DOBUTAMINE [Suspect]
     Active Substance: DOBUTAMINE\DOBUTAMINE HYDROCHLORIDE
     Dosage: 7.5 GAMMA/KG/MIN ()
     Route: 065
  30. DOBUTAMINE [Suspect]
     Active Substance: DOBUTAMINE\DOBUTAMINE HYDROCHLORIDE
     Dosage: UP TO 1.5MG/KG ()
     Route: 065
  31. PHOXILIUM [Suspect]
     Active Substance: CALCIUM CL\MAGNESIUM CL\POTASSIUM CL\SODIUM BICAR\SODIUM CL\SODIUM PHOSPHATE,DIB
     Dosage: ()
     Route: 010
  32. PHOXILIUM [Suspect]
     Active Substance: CALCIUM CL\MAGNESIUM CL\POTASSIUM CL\SODIUM BICAR\SODIUM CL\SODIUM PHOSPHATE,DIB
     Dosage: ()
     Route: 010
  33. METHYLPREDNISOLONE. [Suspect]
     Active Substance: METHYLPREDNISOLONE
     Indication: PRODUCT USED FOR UNKNOWN INDICATION
     Dosage: ()
     Route: 065
     Dates: start: 20170707
  34. GLUCOSE [Suspect]
     Active Substance: DEXTROSE
     Indication: MEDICATION DILUTION
     Dosage: 500 ML, QD
     Route: 065
     Dates: start: 20170715
  35. POTASSIUM CHLORIDE. [Suspect]
     Active Substance: POTASSIUM CHLORIDE
     Indication: TUMOUR LYSIS SYNDROME
     Dosage: ADDED IN PRE DILUTION BAG, FLOW WAS 1LITER PER HOUR ; CYCLICAL
     Route: 042
     Dates: start: 20170715, end: 20170715
  36. HEPARIN [Concomitant]
     Active Substance: HEPARIN SODIUM
     Dosage: ()
     Route: 065
  37. SODIUM CHLORIDE. [Suspect]
     Active Substance: SODIUM CHLORIDE
     Indication: HAEMOFILTRATION
     Dosage: ()
     Route: 065

REACTIONS (14)
  - Cerebrovascular accident [Fatal]
  - Cardiovascular insufficiency [Fatal]
  - Respiratory failure [Fatal]
  - Cerebral haematoma [Fatal]
  - Blood phosphorus increased [Fatal]
  - General physical health deterioration [Fatal]
  - Malaise [Fatal]
  - Hyperkalaemia [Fatal]
  - Ventricular fibrillation [Fatal]
  - Nervous system disorder [Fatal]
  - Cardio-respiratory arrest [Fatal]
  - Renal failure [Fatal]
  - Tumour lysis syndrome [Fatal]
  - Incorrect dose administered [Fatal]

NARRATIVE: CASE EVENT DATE: 20170715
